FAERS Safety Report 21522543 (Version 3)
Quarter: 2022Q4

REPORT INFORMATION
  Report Type: Report from Study
  Country: US (occurrence: US)
  Receive Date: 20221029
  Receipt Date: 20221223
  Transmission Date: 20230113
  Serious: Yes (Hospitalization, Other)
  Sender: FDA-Public Use
  Company Number: US-ABBVIE-4177401

PATIENT
  Age: 39 Year
  Sex: Female

DRUGS (7)
  1. HUMIRA [Suspect]
     Active Substance: ADALIMUMAB
     Indication: Crohn^s disease
     Dosage: CITRATE FREE?FORM STRENGTH: 40MG
     Route: 058
     Dates: start: 20221011
  2. HUMIRA [Suspect]
     Active Substance: ADALIMUMAB
     Indication: Investigation abnormal
  3. HUMIRA [Suspect]
     Active Substance: ADALIMUMAB
     Indication: Gastrointestinal disorder
  4. HUMIRA [Suspect]
     Active Substance: ADALIMUMAB
     Indication: Gastrointestinal disorder
  5. HUMIRA [Suspect]
     Active Substance: ADALIMUMAB
     Indication: Crohn^s disease
     Dosage: CITRATE FREE
     Route: 058
  6. PREDNISONE [Concomitant]
     Active Substance: PREDNISONE
     Indication: Product used for unknown indication
  7. VITAMIN D3 [Concomitant]
     Active Substance: CHOLECALCIFEROL
     Indication: Product used for unknown indication
     Route: 065

REACTIONS (13)
  - Stoma creation [Unknown]
  - Small intestinal obstruction [Unknown]
  - Skin disorder [Unknown]
  - Urinary tract infection [Recovered/Resolved]
  - Oral herpes [Unknown]
  - Constipation [Unknown]
  - Acne [Unknown]
  - Therapeutic product effect incomplete [Recovered/Resolved]
  - Crohn^s disease [Unknown]
  - Bipolar disorder [Unknown]
  - Impaired healing [Unknown]
  - Drug ineffective [Unknown]
  - Fatigue [Unknown]

NARRATIVE: CASE EVENT DATE: 20221001
